FAERS Safety Report 21706106 (Version 1)
Quarter: 2022Q4

REPORT INFORMATION
  Report Type: Spontaneous
  Country: JP (occurrence: JP)
  Receive Date: 20221209
  Receipt Date: 20221209
  Transmission Date: 20230113
  Serious: Yes (Hospitalization, Other)
  Sender: FDA-Public Use
  Company Number: JP-UCBSA-2022069511

PATIENT
  Age: 15 Year
  Sex: Female

DRUGS (1)
  1. LEVETIRACETAM [Suspect]
     Active Substance: LEVETIRACETAM
     Indication: Temporal lobe epilepsy
     Dosage: UNK

REACTIONS (4)
  - Focal dyscognitive seizures [Recovered/Resolved]
  - Generalised tonic-clonic seizure [Recovered/Resolved]
  - Change in seizure presentation [Recovered/Resolved]
  - Drug ineffective [Unknown]
